FAERS Safety Report 21560351 (Version 1)
Quarter: 2022Q4

REPORT INFORMATION
  Report Type: Report from Study
  Country: US (occurrence: US)
  Receive Date: 20221107
  Receipt Date: 20221107
  Transmission Date: 20230113
  Serious: Yes (Other)
  Sender: FDA-Public Use
  Company Number: US-VIIV HEALTHCARE LIMITED-US2022AMR161159

PATIENT

DRUGS (3)
  1. CABOTEGRAVIR [Suspect]
     Active Substance: CABOTEGRAVIR
     Indication: Prophylaxis against HIV infection
     Dosage: UNK
  2. CABOTEGRAVIR [Suspect]
     Active Substance: CABOTEGRAVIR
     Dosage: UNK
  3. CABOTEGRAVIR [Suspect]
     Active Substance: CABOTEGRAVIR

REACTIONS (4)
  - Immobile [Unknown]
  - Pain [Unknown]
  - Injection site reaction [Unknown]
  - Gait inability [Unknown]
